FAERS Safety Report 25831248 (Version 1)
Quarter: 2025Q3

REPORT INFORMATION
  Report Type: Spontaneous
  Country: CN (occurrence: CN)
  Receive Date: 20250922
  Receipt Date: 20250922
  Transmission Date: 20251020
  Serious: Yes (Other)
  Sender: PFIZER
  Company Number: CN-PFIZER INC-PV202500112514

PATIENT
  Age: 3 Year
  Sex: Male
  Weight: 15.6 kg

DRUGS (2)
  1. CYTARABINE [Suspect]
     Active Substance: CYTARABINE
     Indication: Acute lymphocytic leukaemia
     Dosage: 50 MG, 1X/DAY
     Route: 041
     Dates: start: 20250907, end: 20250910
  2. MERCAPTOPURINE [Concomitant]
     Active Substance: MERCAPTOPURINE
     Indication: Acute lymphocytic leukaemia
     Dates: start: 20250907

REACTIONS (3)
  - Hyperpyrexia [Recovered/Resolved]
  - Febrile neutropenia [Unknown]
  - Pyrexia [Recovered/Resolved]

NARRATIVE: CASE EVENT DATE: 20250908
